FAERS Safety Report 5279844-2 (Version None)
Quarter: 2007Q1

REPORT INFORMATION
  Report Type: 
  Country: None (occurrence: None)
  Receive Date: 20070327
  Receipt Date: 20070327
  Transmission Date: 20070707
  Serious: Yes (Life-Threatening)
  Sender: FDA-Public Use
  Company Number: None

PATIENT
  Age: 46 Year
  Sex: Female
  Weight: 37.6486 kg

DRUGS (2)
  1. PROAIR HFA [Suspect]
     Indication: ASTHMA
     Dosage: 2 PUFFS   2-4 HOURS   INHAL
     Route: 055
     Dates: start: 20070308, end: 20070326
  2. PROAIR HFA [Suspect]
     Indication: CHRONIC OBSTRUCTIVE PULMONARY DISEASE
     Dosage: 2 PUFFS   2-4 HOURS   INHAL
     Route: 055
     Dates: start: 20070308, end: 20070326

REACTIONS (3)
  - DRUG INEFFECTIVE [None]
  - FEAR [None]
  - WHEEZING [None]
